FAERS Safety Report 24155175 (Version 1)
Quarter: 2024Q3

REPORT INFORMATION
  Report Type: Spontaneous
  Country: FR (occurrence: FR)
  Receive Date: 20240731
  Receipt Date: 20240731
  Transmission Date: 20241017
  Serious: Yes (Hospitalization)
  Sender: INSMED
  Company Number: FR-INSMED, INC.-2024-02916-FR

PATIENT

DRUGS (1)
  1. ARIKAYCE [Suspect]
     Active Substance: AMIKACIN
     Indication: Product used for unknown indication
     Dosage: 590 MILLIGRAM, 1 VIAL EVERY 15 DAYS
     Route: 055

REACTIONS (2)
  - Hospitalisation [Unknown]
  - Off label use [Unknown]
